FAERS Safety Report 18416719 (Version 1)
Quarter: 2020Q4

REPORT INFORMATION
  Report Type: Spontaneous
  Country: US (occurrence: US)
  Receive Date: 20201022
  Receipt Date: 20201022
  Transmission Date: 20210114
  Serious: Yes (Other)
  Sender: FDA-Public Use
  Company Number: US-TEVA-2020-US-1840487

PATIENT
  Sex: Female

DRUGS (13)
  1. OXYCODONE IR [Suspect]
     Active Substance: OXYCODONE
     Route: 065
  2. MS CONTIN [Suspect]
     Active Substance: MORPHINE SULFATE
     Route: 065
  3. BUPRENORPHINE. [Suspect]
     Active Substance: BUPRENORPHINE
     Route: 062
  4. ACETAMINOPHEN W/HYDROCODONE [Suspect]
     Active Substance: ACETAMINOPHEN\HYDROCODONE
     Route: 065
  5. OXYCODONE ER [Suspect]
     Active Substance: OXYCODONE
     Route: 065
  6. MSIR [Suspect]
     Active Substance: MORPHINE SULFATE
     Route: 065
  7. TRAMADOL. [Suspect]
     Active Substance: TRAMADOL
     Route: 065
  8. OXYCONTIN [Suspect]
     Active Substance: OXYCODONE HYDROCHLORIDE
     Route: 065
  9. HYDROMORPHONE ORAL SOLUTION [Suspect]
     Active Substance: HYDROMORPHONE
     Route: 065
  10. OXYFAST [Suspect]
     Active Substance: OXYCODONE
     Route: 065
  11. RYZOLT [Suspect]
     Active Substance: TRAMADOL HYDROCHLORIDE
     Route: 065
  12. MORPHINE ER [Suspect]
     Active Substance: MORPHINE
     Route: 065
  13. BUTRANS [Suspect]
     Active Substance: BUPRENORPHINE
     Route: 065

REACTIONS (3)
  - Overdose [Unknown]
  - Drug dependence [Unknown]
  - Suicide attempt [Unknown]
